FAERS Safety Report 25889687 (Version 1)
Quarter: 2025Q4

REPORT INFORMATION
  Report Type: Spontaneous
  Country: US (occurrence: None)
  Receive Date: 20251006
  Receipt Date: 20251006
  Transmission Date: 20260118
  Serious: Yes (Hospitalization)
  Sender: FDA-CTU
  Company Number: None

PATIENT
  Sex: Male

DRUGS (9)
  1. ABIRATERONE ACETATE [Suspect]
     Active Substance: ABIRATERONE ACETATE
     Indication: Prostate cancer
     Dosage: TAKE 4 TABLETS (1000 MG) BY MOUTH EVERY MORNING SWALLOW WHOLE ON EMPTY STOMACH 2 HOURS BEFORE  AND 1 HOUR AFTER?
     Route: 048
     Dates: start: 20210805
  2. ABIRATERONE ACETATE [Concomitant]
     Active Substance: ABIRATERONE ACETATE
  3. ASCORBIC AGO TAB 500MG [Concomitant]
  4. BICALUTAMIDE [Concomitant]
     Active Substance: BICALUTAMIDE
  5. CALCIUM 600 TAB +D [Concomitant]
  6. IRBESARTAN TAB 150MG [Concomitant]
  7. MULTIVITAMIN TAB MEN 50+ [Concomitant]
  8. ONDANSETRON [Concomitant]
     Active Substance: ONDANSETRON
  9. PREDNISONE [Concomitant]
     Active Substance: PREDNISONE

REACTIONS (2)
  - Hospitalisation [None]
  - Therapy interrupted [None]
